FAERS Safety Report 7359272-6 (Version None)
Quarter: 2011Q1

REPORT INFORMATION
  Report Type: 
  Country: None (occurrence: None)
  Receive Date: 20110317
  Receipt Date: 20091012
  Transmission Date: 20110831
  Serious: No
  Sender: FDA-Public Use
  Company Number: US-PFIZER INC-2009256219

PATIENT
  Age: 59 Year
  Sex: Female

DRUGS (2)
  1. LOTENSIN [Concomitant]
  2. NORVASC [Suspect]

REACTIONS (3)
  - PAIN IN EXTREMITY [None]
  - OEDEMA PERIPHERAL [None]
  - DRUG INEFFECTIVE [None]
